FAERS Safety Report 4554999-3 (Version None)
Quarter: 2004Q4

REPORT INFORMATION
  Report Type: 
  Country: None (occurrence: None)
  Receive Date: 20041217
  Receipt Date: 20040921
  Transmission Date: 20050328
  Serious: No
  Sender: FDA-Public Use
  Company Number: 2004-BP-08592BP

PATIENT
  Age: 68 Year
  Sex: Female

DRUGS (5)
  1. SPIRIVA [Suspect]
     Indication: EMPHYSEMA
     Dosage: 18 MCG (18 MCG), IH
     Route: 055
     Dates: start: 20040628
  2. FLOVENT [Concomitant]
  3. PROVENTIL (SALBUTAMOL SULFATE) [Concomitant]
  4. SEREVENT [Concomitant]
  5. PREDNISONE [Concomitant]

REACTIONS (2)
  - DYSPNOEA [None]
  - IMMOBILE [None]
